FAERS Safety Report 7545658-3 (Version None)
Quarter: 2011Q2

REPORT INFORMATION
  Report Type: 
  Country: None (occurrence: None)
  Receive Date: 20110613
  Receipt Date: 20110613
  Transmission Date: 20111010
  Serious: No
  Sender: FDA-Public Use
  Company Number: None

PATIENT
  Age: 54 Year
  Sex: Female
  Weight: 73.6 kg

DRUGS (6)
  1. TRAZODONE HCL [Concomitant]
  2. DEXAMETHASONE [Concomitant]
  3. ATENOLOL [Concomitant]
  4. MAGNESIUM OXIDE [Concomitant]
  5. IBUPROFEN [Concomitant]
  6. REVLIMID [Suspect]
     Indication: MULTIPLE MYELOMA
     Dosage: 10 MG DAILY BY MOUTH
     Route: 048
     Dates: start: 20100513

REACTIONS (3)
  - RASH MACULO-PAPULAR [None]
  - DIARRHOEA [None]
  - PRURITUS [None]
